FAERS Safety Report 25208660 (Version 1)
Quarter: 2025Q2

REPORT INFORMATION
  Report Type: Spontaneous
  Country: US (occurrence: None)
  Receive Date: 20250416
  Receipt Date: 20250416
  Transmission Date: 20250717
  Serious: No
  Sender: FDA-CTU
  Company Number: None

PATIENT
  Age: 35 Year
  Weight: 92.25 kg

DRUGS (1)
  1. XOLAIR [Suspect]
     Active Substance: OMALIZUMAB
     Dosage: 300 MG ONCE EVERY 2 WEEKS SUBCUTANEOUS?
     Route: 058

REACTIONS (4)
  - Product dispensing error [None]
  - Incorrect dose administered [None]
  - Product communication issue [None]
  - Product prescribing error [None]

NARRATIVE: CASE EVENT DATE: 20250415
